FAERS Safety Report 14506920 (Version 2)
Quarter: 2018Q1

REPORT INFORMATION
  Report Type: Spontaneous
  Country: JP (occurrence: JP)
  Receive Date: 20180208
  Receipt Date: 20180302
  Transmission Date: 20180509
  Serious: Yes (Hospitalization)
  Sender: FDA-Public Use
  Company Number: PHJP2018JP002522

PATIENT
  Age: 38 Year
  Sex: Female

DRUGS (1)
  1. REVOLADE TAB [Suspect]
     Active Substance: ELTROMBOPAG
     Indication: SYSTEMIC LUPUS ERYTHEMATOSUS
     Dosage: UNK
     Route: 048

REACTIONS (10)
  - Sinus tachycardia [Unknown]
  - Dyspnoea [Unknown]
  - Hepatitis E [Recovering/Resolving]
  - Product use in unapproved indication [Unknown]
  - Malaise [Unknown]
  - Lupus endocarditis [Unknown]
  - Liver disorder [Recovering/Resolving]
  - Abdominal pain upper [Unknown]
  - Cholecystitis acute [Recovering/Resolving]
  - Cardiac failure [Unknown]
